FAERS Safety Report 10018762 (Version 1)
Quarter: 2014Q1

REPORT INFORMATION
  Report Type: Spontaneous
  Country: US (occurrence: US)
  Receive Date: 20140318
  Receipt Date: 20140318
  Transmission Date: 20141002
  Serious: Yes (Disabling, Other)
  Sender: FDA-Public Use
  Company Number: US-ACTAVIS-2014-04616

PATIENT
  Age: 33 Year
  Sex: Female

DRUGS (4)
  1. HYDROXYZINE (WATSON LABORATORIES) [Suspect]
     Indication: DERMATITIS CONTACT
     Dosage: UNKNOWN
     Route: 048
  2. NEOMYCIN [Suspect]
     Indication: PRODUCT USED FOR UNKNOWN INDICATION
     Dosage: UNKNOWN
     Route: 061
  3. ETHYLENEDIAMINE [Suspect]
     Indication: SKIN TEST
     Dosage: UNKNOWN
     Route: 061
  4. PREDNISONE [Concomitant]
     Indication: DERMATITIS CONTACT
     Dosage: UNKNOWN
     Route: 048

REACTIONS (3)
  - Dermatitis contact [Recovering/Resolving]
  - Condition aggravated [Recovering/Resolving]
  - Drug hypersensitivity [Unknown]
